FAERS Safety Report 9815327 (Version 2)
Quarter: 2014Q1

REPORT INFORMATION
  Report Type: Spontaneous
  Country: MX (occurrence: MX)
  Receive Date: 20140114
  Receipt Date: 20140120
  Transmission Date: 20141002
  Serious: Yes (Death)
  Sender: FDA-Public Use
  Company Number: MX-ROCHE-1332228

PATIENT
  Age: 36 Year
  Sex: Male
  Weight: 45.3 kg

DRUGS (4)
  1. ZELBORAF [Suspect]
     Indication: METASTATIC MALIGNANT MELANOMA
     Route: 048
  2. AVASTIN [Suspect]
     Indication: METASTATIC MALIGNANT MELANOMA
     Route: 042
  3. CARBOPLATIN [Suspect]
     Indication: METASTATIC MALIGNANT MELANOMA
     Route: 042
  4. PACLITAXEL [Suspect]
     Indication: METASTATIC MALIGNANT MELANOMA
     Route: 042

REACTIONS (3)
  - Disease progression [Fatal]
  - Drug ineffective [Unknown]
  - Dysphagia [Not Recovered/Not Resolved]
